FAERS Safety Report 7801961-0 (Version None)
Quarter: 2011Q4

REPORT INFORMATION
  Report Type: 
  Country: None (occurrence: None)
  Receive Date: 20111007
  Receipt Date: 20111007
  Transmission Date: 20120403
  Serious: Yes (Hospitalization)
  Sender: FDA-Public Use
  Company Number: None

PATIENT
  Age: 73 Year
  Sex: Female
  Weight: 87.996 kg

DRUGS (1)
  1. HUMIRA [Suspect]
     Indication: RHEUMATOID ARTHRITIS
     Dosage: INJECT 40MG
     Route: 058
     Dates: start: 20110907, end: 20110907

REACTIONS (9)
  - STAPHYLOCOCCAL SEPSIS [None]
  - MUSCLE SPASMS [None]
  - FEELING ABNORMAL [None]
  - HEART RATE INCREASED [None]
  - ARTHRALGIA [None]
  - HAEMOGLOBIN DECREASED [None]
  - ABASIA [None]
  - ACTIVITIES OF DAILY LIVING IMPAIRED [None]
  - URINARY INCONTINENCE [None]
